FAERS Safety Report 18821948 (Version 4)
Quarter: 2021Q1

REPORT INFORMATION
  Report Type: Spontaneous
  Country: CA (occurrence: CA)
  Receive Date: 20210202
  Receipt Date: 20210331
  Transmission Date: 20210419
  Serious: Yes (Other)
  Sender: FDA-Public Use
  Company Number: CA-PFIZER INC-2020241561

PATIENT
  Age: 70 Year
  Sex: Female
  Weight: 85 kg

DRUGS (6)
  1. AMLODIPINE [Concomitant]
     Active Substance: AMLODIPINE BESYLATE
     Dosage: UNK
  2. IBRANCE [Suspect]
     Active Substance: PALBOCICLIB
     Indication: BREAST CANCER FEMALE
     Dosage: 75 MG, CYCLIC (EVERY 4 WEEKS 3 WEEKS, ONE WEEK OFF)
     Dates: start: 20200311
  3. IBRANCE [Suspect]
     Active Substance: PALBOCICLIB
     Dosage: 125 MG, CYCLIC (21 DAYS ON/ 7 DAYS OFF)
  4. FULVESTRANT. [Concomitant]
     Active Substance: FULVESTRANT
     Indication: BREAST CANCER FEMALE
     Dosage: 500 MG, CYCLIC (EVERY 28 DAYS)
     Route: 030
  5. IBRANCE [Suspect]
     Active Substance: PALBOCICLIB
     Dosage: 75 MG, DAILY (1 CAPSULE DAILY WITH FOOD FOR 21 DAYS THEN STOP FOR 7 DAYS)
     Route: 048
  6. PERINDOPRIL [Concomitant]
     Active Substance: PERINDOPRIL
     Dosage: UNK

REACTIONS (6)
  - Neutropenia [Unknown]
  - Body surface area decreased [Unknown]
  - White blood cell count decreased [Recovered/Resolved]
  - Myelosuppression [Unknown]
  - Leukopenia [Unknown]
  - Renal disorder [Unknown]

NARRATIVE: CASE EVENT DATE: 2020
